FAERS Safety Report 14822984 (Version 3)
Quarter: 2018Q2

REPORT INFORMATION
  Report Type: Report from Study
  Country: DE (occurrence: DE)
  Receive Date: 20180427
  Receipt Date: 20180518
  Transmission Date: 20180711
  Serious: Yes (Life-Threatening, Hospitalization, Other)
  Sender: FDA-Public Use
  Company Number: PHHY2018DE065903

PATIENT
  Age: 53 Year
  Sex: Female
  Weight: 71 kg

DRUGS (1)
  1. ENTRESTO [Suspect]
     Active Substance: SACUBITRIL\VALSARTAN
     Indication: CARDIAC FAILURE
     Dosage: 1 DF (48 MG SACUBITRIL AND 51 MG VALSARTAN), BID (1-01-1)
     Route: 065
     Dates: start: 20170524, end: 20180419

REACTIONS (5)
  - Device inappropriate shock delivery [Recovered/Resolved]
  - Device inappropriate shock delivery [Recovering/Resolving]
  - Ventricular tachycardia [Recovered/Resolved]
  - Mental impairment [Not Recovered/Not Resolved]
  - Arrhythmia [Recovering/Resolving]

NARRATIVE: CASE EVENT DATE: 20180407
